FAERS Safety Report 8612604-0 (Version None)
Quarter: 2012Q3

REPORT INFORMATION
  Report Type: 
  Country: None (occurrence: None)
  Receive Date: 20120822
  Receipt Date: 20111118
  Transmission Date: 20120928
  Serious: No
  Sender: FDA-Public Use
  Company Number: US-ASTRAZENECA-2011SE63234

PATIENT
  Age: 78 Year
  Sex: Female
  Weight: 68 kg

DRUGS (5)
  1. HEART MEDICINE [Concomitant]
  2. SYMBICORT [Suspect]
     Indication: ASTHMA
     Dosage: 80/4.5 MCG, BID
     Route: 055
     Dates: start: 20111008
  3. WARFARIN SODIUM [Concomitant]
  4. ALBUTEROL [Concomitant]
     Indication: INHALATION THERAPY
  5. SYMBICORT [Suspect]
     Dosage: 80/4.5 MCG, 2 PUFFS TWICE A DAY
     Route: 055
     Dates: start: 20111008

REACTIONS (3)
  - DYSPNOEA [None]
  - ASTHENIA [None]
  - INCORRECT DOSE ADMINISTERED [None]
